FAERS Safety Report 8389596 (Version 2)
Quarter: 2015Q3

REPORT INFORMATION
  Report Type: Report from Study
  Country: US (occurrence: US)
  Receive Date: 20120203
  Receipt Date: 20150701
  Transmission Date: 20151125
  Serious: Yes (Death)
  Sender: FDA-Public Use
  Company Number: US-ROCHE-1036189

PATIENT
  Sex: Male

DRUGS (6)
  1. OXALIPLATIN. [Concomitant]
     Active Substance: OXALIPLATIN
  2. AVASTIN [Suspect]
     Active Substance: BEVACIZUMAB
     Indication: CHOLANGIOCARCINOMA
     Route: 042
     Dates: start: 20061009
  3. TYLENOL [Concomitant]
     Active Substance: ACETAMINOPHEN
     Route: 048
  4. AVASTIN [Suspect]
     Active Substance: BEVACIZUMAB
     Indication: HEPATIC CANCER
     Route: 042
  5. GEMZAR [Concomitant]
     Active Substance: GEMCITABINE HYDROCHLORIDE
  6. BENADRYL [Concomitant]
     Active Substance: DIPHENHYDRAMINE HYDROCHLORIDE
     Route: 048

REACTIONS (2)
  - Off label use [Unknown]
  - Death [Fatal]
